FAERS Safety Report 7161705 (Version 6)
Quarter: 2020Q3

REPORT INFORMATION
  Report Type: Spontaneous
  Country: GB (occurrence: GB)
  Receive Date: 20091029
  Receipt Date: 20110124
  Transmission Date: 20201105
  Serious: Yes (Other)
  Sender: FDA-Public Use
  Company Number: GB-ROCHE-664036

PATIENT
  Age: 67 Year
  Sex: Male
  Weight: 76 kg

DRUGS (3)
  1. ZOLEDRONIC ACID [Suspect]
     Active Substance: ZOLEDRONIC ACID
     Route: 065
     Dates: start: 2003, end: 2004
  2. IBANDRONIC ACID. [Suspect]
     Active Substance: IBANDRONIC ACID
     Indication: OSTEOPOROSIS
     Dosage: DRUG WITHDRAWN
     Route: 065
     Dates: start: 2004, end: 2008
  3. ALENDRONIC ACID [Suspect]
     Active Substance: ALENDRONIC ACID
     Indication: OSTEOPOROSIS
     Route: 048
     Dates: start: 2000, end: 2003

REACTIONS (5)
  - Pain [Unknown]
  - Impaired healing [Recovering/Resolving]
  - Device breakage [Recovering/Resolving]
  - Femur fracture [Recovered/Resolved]
  - Internal fixation of fracture [Unknown]

NARRATIVE: CASE EVENT DATE: 20041101
